FAERS Safety Report 7693598-1 (Version None)
Quarter: 2011Q3

REPORT INFORMATION
  Report Type: 
  Country: None (occurrence: None)
  Receive Date: 20110819
  Receipt Date: 20110817
  Transmission Date: 20111222
  Serious: No
  Sender: FDA-Public Use
  Company Number: US-PFIZER INC-2011081318

PATIENT
  Sex: Female
  Weight: 90.703 kg

DRUGS (6)
  1. NORVASC [Suspect]
     Indication: HYPERTENSION
     Dosage: 5 MG, 1X/DAY
     Dates: start: 20101201
  2. NORVASC [Suspect]
     Dosage: 5 MG, 1X/DAY
     Route: 048
     Dates: start: 20101201
  3. XANAX [Concomitant]
     Indication: INSOMNIA
     Dosage: UNK
  4. AMLODIPINE BESYLATE [Suspect]
     Indication: HYPERTENSION
     Dosage: 5 MG, 1X/DAY
     Route: 048
     Dates: start: 20100101, end: 20101201
  5. XANAX [Suspect]
     Dosage: UNK
  6. TIMOLOL [Concomitant]
     Indication: GLAUCOMA
     Dosage: UNK
     Route: 047

REACTIONS (4)
  - INITIAL INSOMNIA [None]
  - LIVER DISORDER [None]
  - PRESYNCOPE [None]
  - DIZZINESS [None]
